FAERS Safety Report 5510341-2 (Version None)
Quarter: 2007Q4

REPORT INFORMATION
  Report Type: 
  Country: None (occurrence: None)
  Receive Date: 20071108
  Receipt Date: 20071030
  Transmission Date: 20080405
  Serious: Yes (Death)
  Sender: FDA-Public Use
  Company Number: TR-ABBOTT-07P-161-0378416-00

PATIENT
  Age: 39 Year
  Sex: Male
  Weight: 67 kg

DRUGS (1)
  1. TARKA [Suspect]
     Indication: DRUG USE FOR UNKNOWN INDICATION
     Route: 048
     Dates: start: 20070803, end: 20070803

REACTIONS (3)
  - BRADYCARDIA [None]
  - COMPLETED SUICIDE [None]
  - POISONING [None]
